FAERS Safety Report 24067737 (Version 1)
Quarter: 2024Q3

REPORT INFORMATION
  Report Type: Spontaneous
  Country: GB (occurrence: GB)
  Receive Date: 20240710
  Receipt Date: 20240710
  Transmission Date: 20241017
  Serious: Yes (Other)
  Sender: Haleon PLC
  Company Number: None

PATIENT
  Age: 61 Year
  Sex: Female
  Weight: 116 kg

DRUGS (4)
  1. ORLISTAT [Suspect]
     Active Substance: ORLISTAT
     Indication: Obesity
     Dosage: 120MG
     Dates: start: 20240308
  2. ORLISTAT [Suspect]
     Active Substance: ORLISTAT
     Indication: Adverse drug reaction
  3. ASPIRIN [Concomitant]
     Active Substance: ASPIRIN
     Indication: Product used for unknown indication
  4. AMLODIPINE [Concomitant]
     Active Substance: AMLODIPINE BESYLATE
     Indication: Blood pressure increased

REACTIONS (2)
  - Myalgia [Not Recovered/Not Resolved]
  - Medication error [Unknown]

NARRATIVE: CASE EVENT DATE: 20240401
